FAERS Safety Report 18947706 (Version 2)
Quarter: 2021Q3

REPORT INFORMATION
  Report Type: Report from Study
  Country: HN (occurrence: HN)
  Receive Date: 20210226
  Receipt Date: 20210809
  Transmission Date: 20211014
  Serious: Yes (Other)
  Sender: FDA-Public Use
  Company Number: NVSC2021HN038553

PATIENT
  Age: 39 Year
  Sex: Female
  Weight: 111 kg

DRUGS (5)
  1. METHOTREXATE. [Suspect]
     Active Substance: METHOTREXATE
     Dosage: (2 OF 2.5MG, ON SATURDAY AND SUNDAY)
     Route: 065
  2. PLAQUINOL [Concomitant]
     Active Substance: HYDROXYCHLOROQUINE SULFATE
     Indication: RHEUMATOID ARTHRITIS
     Dosage: 400 MG, QD
     Route: 065
     Dates: end: 20210106
  3. BERIFEN [Concomitant]
     Indication: RHEUMATOID ARTHRITIS
     Dosage: 2 DF, QD
     Route: 065
     Dates: end: 20210106
  4. METHOTREXATE. [Suspect]
     Active Substance: METHOTREXATE
     Indication: RHEUMATOID ARTHRITIS
     Dosage: (4 OF 2.5 MG,EVERY MONDAY
     Route: 065
  5. ARAVA [Concomitant]
     Active Substance: LEFLUNOMIDE
     Indication: RHEUMATOID ARTHRITIS
     Dosage: UNK
     Route: 065
     Dates: end: 20210106

REACTIONS (6)
  - Alopecia [Unknown]
  - Psoriatic arthropathy [Unknown]
  - Guttate psoriasis [Unknown]
  - Photopsia [Unknown]
  - Arthralgia [Unknown]
  - Skin plaque [Unknown]

NARRATIVE: CASE EVENT DATE: 2020
